FAERS Safety Report 23781835 (Version 2)
Quarter: 2024Q3

REPORT INFORMATION
  Report Type: Spontaneous
  Country: CA (occurrence: CA)
  Receive Date: 20240425
  Receipt Date: 20240716
  Transmission Date: 20241016
  Serious: Yes (Hospitalization, Other)
  Sender: BAXTER
  Company Number: CA-BAXTER-2024BAX017310

PATIENT
  Age: 28 Year
  Sex: Male

DRUGS (15)
  1. VANCOMYCIN [Suspect]
     Active Substance: VANCOMYCIN
     Indication: Product used for unknown indication
     Dosage: UNK
     Route: 065
  2. ACETAMINOPHEN [Suspect]
     Active Substance: ACETAMINOPHEN
     Indication: Premedication
     Dosage: 650 MILLIGRAMS AT UNSPECIFIED FREQUENCY (DOSAGE FORM: NOT SPECIFIED)
     Route: 048
  3. DIPHENHYDRAMINE [Suspect]
     Active Substance: DIPHENHYDRAMINE
     Indication: Premedication
     Dosage: 50.0 MILLIGRAM
     Route: 048
  4. LEFLUNOMIDE [Suspect]
     Active Substance: LEFLUNOMIDE
     Indication: Systemic lupus erythematosus
     Dosage: AT AN UNSPECIFIED DOSE AND FREQUENCY (DOSAGE FORM: NOT SPECIFIED)
     Route: 065
  5. METHYLPREDNISOLONE [Suspect]
     Active Substance: METHYLPREDNISOLONE
     Indication: Premedication
     Dosage: 100.0 MILLIGRAM AT UNSPECIFIED FREQUENCY
     Route: 042
  6. MYFORTIC [Suspect]
     Active Substance: MYCOPHENOLATE SODIUM
     Indication: Systemic lupus erythematosus
     Dosage: AT AN UNSPECIFIED DOSE AND FREQUENCY
     Route: 065
  7. PLAQUENIL [Suspect]
     Active Substance: HYDROXYCHLOROQUINE SULFATE
     Indication: Systemic lupus erythematosus
     Dosage: UNK
     Route: 065
  8. PREDNISONE [Suspect]
     Active Substance: PREDNISONE
     Indication: Systemic lupus erythematosus
     Dosage: (DOSAGE FORM: NOT SPECIFIED) AT AN UNSPECIFIED DOSE AND FREQUENCY
     Route: 065
  9. RITUXIMAB [Suspect]
     Active Substance: RITUXIMAB
     Indication: Systemic lupus erythematosus
     Dosage: 1000.0 MILLIGRAM AT UNSPECIFIED FREQUENCY
     Route: 042
  10. RITUXIMAB [Suspect]
     Active Substance: RITUXIMAB
     Indication: Systemic lupus erythematosus
     Dosage: 1000.0 MILLIGRAM AT UNSPECIFIED FREQUENCY
     Route: 042
  11. HYDROXYCHLOROQUINE SULFATE [Suspect]
     Active Substance: HYDROXYCHLOROQUINE SULFATE
     Indication: Systemic lupus erythematosus
     Dosage: AT AN UNSPECIFIED DOSE AND FREQUENCY
     Route: 065
  12. METHYLPREDNISOLONE SODIUM SUCCINATE [Suspect]
     Active Substance: METHYLPREDNISOLONE SODIUM SUCCINATE
     Indication: Premedication
     Dosage: 100.0 MILLIGRAM AT AN UNSPECIFIED FREQUENCY
     Route: 042
  13. MYCOPHENOLATE SODIUM [Suspect]
     Active Substance: MYCOPHENOLATE SODIUM
     Indication: Systemic lupus erythematosus
     Dosage: AT AN UNSPECIFIED DOSE AND FREQUENCY (DOSAGE FORM: COATED TABLET)
     Route: 065
  14. VANCOMYCIN HYDROCHLORIDE [Suspect]
     Active Substance: VANCOMYCIN HYDROCHLORIDE
     Indication: Product used for unknown indication
     Dosage: AT AN UNSPECIFIED DOSE AND FREQUENCY
     Route: 065
  15. DIPHENHYDRAMINE HYDROCHLORIDE [Concomitant]
     Active Substance: DIPHENHYDRAMINE HYDROCHLORIDE
     Indication: Product used for unknown indication
     Dosage: 50.0 MILLIGRAM AT UNSPECIFIED FREQUENCY
     Route: 048

REACTIONS (13)
  - Cough [Recovered/Resolved]
  - Double stranded DNA antibody positive [Recovered/Resolved]
  - Haemoglobin decreased [Recovered/Resolved]
  - Headache [Recovered/Resolved]
  - Product use in unapproved indication [Recovered/Resolved]
  - Rash maculo-papular [Recovered/Resolved]
  - Protein urine [Recovered/Resolved]
  - White blood cell count decreased [Recovered/Resolved]
  - Systemic lupus erythematosus [Recovered/Resolved]
  - Off label use [Recovered/Resolved]
  - Rash [Recovered/Resolved]
  - Vancomycin infusion reaction [Recovered/Resolved]
  - Pyrexia [Recovered/Resolved]
